FAERS Safety Report 18663663 (Version 3)
Quarter: 2021Q1

REPORT INFORMATION
  Report Type: Spontaneous
  Country: US (occurrence: US)
  Receive Date: 20201225
  Receipt Date: 20210126
  Transmission Date: 20210419
  Serious: No
  Sender: FDA-Public Use
  Company Number: US-AMGEN-USASP2020208975

PATIENT
  Sex: Female

DRUGS (1)
  1. PROLIA [Suspect]
     Active Substance: DENOSUMAB
     Indication: PRODUCT USED FOR UNKNOWN INDICATION
     Dosage: UNK
     Route: 065

REACTIONS (10)
  - Gingival recession [Unknown]
  - Gingival disorder [Unknown]
  - Loose tooth [Unknown]
  - Tooth disorder [Unknown]
  - Pain [Unknown]
  - Adverse event [Unknown]
  - Jaw disorder [Unknown]
  - Tooth discolouration [Unknown]
  - Abscess [Unknown]
  - Infection [Unknown]
